FAERS Safety Report 12628239 (Version 1)
Quarter: 2016Q3

REPORT INFORMATION
  Report Type: Spontaneous
  Country: US (occurrence: None)
  Receive Date: 20160805
  Receipt Date: 20160805
  Transmission Date: 20161109
  Serious: Yes (Hospitalization)
  Sender: FDA-Public Use
  Company Number: None

PATIENT
  Age: 56 Year
  Sex: Female
  Weight: 60 kg

DRUGS (10)
  1. AMLODIPINE [Concomitant]
     Active Substance: AMLODIPINE BESYLATE
  2. OMEPRAZOLE. [Concomitant]
     Active Substance: OMEPRAZOLE
  3. BEV10MG/KG GENENTECH [Suspect]
     Active Substance: BEVACIZUMAB
     Indication: PANCREATIC NEUROENDOCRINE TUMOUR METASTATIC
     Dosage: DAY1+15, 1-14, 10-14 IV, ORAL, ORAL
     Dates: start: 20160316, end: 20160707
  4. LOSARTAN AND HYDROCHLOROTHIAZIDE [Concomitant]
     Active Substance: HYDROCHLOROTHIAZIDE\LOSARTAN POTASSIUM
  5. RANITIDINE. [Concomitant]
     Active Substance: RANITIDINE
  6. POLYETHYLENE GLYCOL [Concomitant]
     Active Substance: POLYETHYLENE GLYCOLS
  7. TEM200MG/M^2 MERCK [Suspect]
     Active Substance: TEMOZOLOMIDE
     Indication: PANCREATIC NEUROENDOCRINE TUMOUR METASTATIC
  8. METOCLOPRAMIDE. [Concomitant]
     Active Substance: METOCLOPRAMIDE
  9. ONDANSETRON [Concomitant]
     Active Substance: ONDANSETRON
  10. CAPE750MG/M^2 GENENTECH [Suspect]
     Active Substance: CAPECITABINE
     Indication: PANCREATIC NEUROENDOCRINE TUMOUR METASTATIC

REACTIONS (6)
  - Haematemesis [None]
  - Pancreatic duct obstruction [None]
  - Haemoglobin decreased [None]
  - Nausea [None]
  - Vomiting [None]
  - Duodenal ulcer [None]

NARRATIVE: CASE EVENT DATE: 20160707
